FAERS Safety Report 7496060-4 (Version None)
Quarter: 2011Q2

REPORT INFORMATION
  Report Type: 
  Country: None (occurrence: None)
  Receive Date: 20110513
  Receipt Date: 20110428
  Transmission Date: 20111010
  Serious: Yes (Hospitalization)
  Sender: FDA-Public Use
  Company Number: DKLU1069676

PATIENT
  Age: 2 Year
  Sex: Male

DRUGS (2)
  1. SABRIL [Suspect]
     Indication: CONVULSION
     Dosage: 600, 500  MG MILLIGRAMS, 2 IN 1 D, ORAL
     Route: 048
     Dates: start: 20100801, end: 20110101
  2. SABRIL [Suspect]
     Indication: CONVULSION
     Dosage: 600, 500  MG MILLIGRAMS, 2 IN 1 D, ORAL
     Route: 048
     Dates: start: 20110101

REACTIONS (3)
  - HEPATIC FAILURE [None]
  - MALAISE [None]
  - RENAL FAILURE [None]
